FAERS Safety Report 21656409 (Version 1)
Quarter: 2022Q4

REPORT INFORMATION
  Report Type: Spontaneous
  Country: GB (occurrence: GB)
  Receive Date: 20221129
  Receipt Date: 20221129
  Transmission Date: 20230112
  Serious: Yes (Hospitalization, Other)
  Sender: FDA-Public Use
  Company Number: GB-BAXTER-2022BAX025154

PATIENT
  Age: 59 Year
  Sex: Male
  Weight: 48.4 kg

DRUGS (1)
  1. CALCIUM CHLORIDE\DEXTROSE\MAGNESIUM CHLORIDE\SODIUM CHLORIDE [Suspect]
     Active Substance: CALCIUM CHLORIDE\DEXTROSE\MAGNESIUM CHLORIDE\SODIUM CHLORIDE
     Indication: Peritoneal dialysis
     Route: 033

REACTIONS (5)
  - Mycobacterium avium complex infection [Unknown]
  - Peritonitis [Not Recovered/Not Resolved]
  - Peritoneal cloudy effluent [Not Recovered/Not Resolved]
  - Abdominal pain [Not Recovered/Not Resolved]
  - Inadequate peritoneal dialysis [Unknown]

NARRATIVE: CASE EVENT DATE: 20221020
